FAERS Safety Report 9263744 (Version 2)
Quarter: 2013Q3

REPORT INFORMATION
  Report Type: Report from Study
  Country: BR (occurrence: BR)
  Receive Date: 20130430
  Receipt Date: 20130823
  Transmission Date: 20140515
  Serious: Yes (Other)
  Sender: FDA-Public Use
  Company Number: PHHY2013BR037767

PATIENT
  Sex: Male
  Weight: 123 kg

DRUGS (6)
  1. GALVUS MET [Suspect]
     Indication: DIABETES MELLITUS
     Dosage: 1 DF (1000 MG METF AND 500 MG VILDA), 1 TABLET IN THE MORNING AND 1 TABLET AT NIGHT
     Route: 048
  2. DIOVAN AMLO FIX [Suspect]
     Indication: HYPERTENSION
     Dosage: 1 DF (160 MG VALS AND 5 MG AMLO) QD AT LUNCH
     Route: 048
  3. DIOVAN AMLO FIX [Suspect]
     Dosage: 1 DF (320 MG VALS AND 5 MG AMLO) QD IN THE MORNING
     Route: 048
  4. DIOVAN [Suspect]
     Indication: BLOOD PRESSURE ABNORMAL
  5. FLUTAMIDE [Concomitant]
     Indication: PROSTATE CANCER
     Dosage: 3 DF (250 MG), A DAY
     Route: 048
  6. ACETYLSALICYLIC ACID [Concomitant]
     Indication: CARDIOVASCULAR DISORDER
     Dosage: 2 DF (100 MG), AT LUNCH
     Route: 048
     Dates: end: 20121130

REACTIONS (1)
  - Cerebrovascular accident [Unknown]
